FAERS Safety Report 5860745-3 (Version None)
Quarter: 2008Q3

REPORT INFORMATION
  Report Type: 
  Country: None (occurrence: None)
  Receive Date: 20080827
  Receipt Date: 20071030
  Transmission Date: 20090109
  Serious: No
  Sender: FDA-Public Use
  Company Number: US-ABBOTT-07P-163-0422635-00

PATIENT
  Sex: Male
  Weight: 122.72 kg

DRUGS (7)
  1. COATED PDS [Suspect]
     Indication: HIGH DENSITY LIPOPROTEIN DECREASED
     Route: 048
     Dates: start: 20071024
  2. ATENOLOL [Concomitant]
     Indication: BLOOD PRESSURE
     Route: 048
  3. LEVOTHYROXINE SODIUM [Concomitant]
     Indication: THYROIDECTOMY
     Route: 048
  4. ATORVASTATIN CALCIUM [Concomitant]
     Indication: HIGH DENSITY LIPOPROTEIN DECREASED
     Route: 048
  5. MONTELUKAST SODIUM [Concomitant]
     Indication: SEASONAL ALLERGY
     Route: 048
  6. CETIRIZINE HYDROCHLORIDE [Concomitant]
     Indication: SEASONAL ALLERGY
     Route: 048
  7. CLONIDINE [Concomitant]
     Indication: BLOOD PRESSURE
     Route: 048

REACTIONS (2)
  - FLUSHING [None]
  - PRURITUS [None]
